FAERS Safety Report 6380497-0 (Version None)
Quarter: 2009Q3

REPORT INFORMATION
  Report Type: 
  Country: None (occurrence: None)
  Receive Date: 20090921
  Receipt Date: 20090910
  Transmission Date: 20100115
  Serious: Yes (Other)
  Sender: FDA-Public Use
  Company Number: 2009EU003579

PATIENT
  Age: 20 Year
  Sex: Female

DRUGS (5)
  1. TACROLIMUS [Suspect]
     Indication: ANTIINFLAMMATORY THERAPY
     Dosage: D
  2. LEVETIRACETAM [Concomitant]
  3. OXCARBAZEPINE [Concomitant]
  4. ZONISAMIDE [Concomitant]
  5. PHENOBARBITAL [Concomitant]

REACTIONS (1)
  - CEREBRAL ATROPHY [None]
